FAERS Safety Report 14895262 (Version 1)
Quarter: 2018Q2

REPORT INFORMATION
  Report Type: Spontaneous
  Country: FR (occurrence: FR)
  Receive Date: 20180515
  Receipt Date: 20180515
  Transmission Date: 20180711
  Serious: Yes (Other)
  Sender: FDA-Public Use
  Company Number: FR-MERCK KGAA-2047737

PATIENT
  Age: 57 Year
  Sex: Female

DRUGS (3)
  1. NOVOTHYROX [Suspect]
     Active Substance: LEVOTHYROXINE SODIUM
  2. NOVOTHYROX [Suspect]
     Active Substance: LEVOTHYROXINE SODIUM
     Dates: end: 20171002
  3. NOVOTHYROX [Suspect]
     Active Substance: LEVOTHYROXINE SODIUM
     Indication: AUTOIMMUNE THYROIDITIS
     Dates: start: 20170523

REACTIONS (27)
  - Dry skin [None]
  - Somnolence [None]
  - Anxiety [None]
  - Disturbance in attention [None]
  - Social avoidant behaviour [None]
  - Menorrhagia [None]
  - Asthenia [Recovered/Resolved]
  - Oedema peripheral [None]
  - Gait disturbance [None]
  - Loss of personal independence in daily activities [None]
  - Cortisol increased [None]
  - Diarrhoea [Recovered/Resolved]
  - Nightmare [None]
  - Blood thyroid stimulating hormone increased [Recovering/Resolving]
  - Alopecia [None]
  - Fatigue [None]
  - Aphasia [None]
  - Feeling abnormal [None]
  - Muscular weakness [None]
  - Genital haemorrhage [None]
  - Pain in extremity [None]
  - Stress [None]
  - Arthralgia [None]
  - Myalgia [None]
  - Irritability [None]
  - Memory impairment [None]
  - Poor quality sleep [None]

NARRATIVE: CASE EVENT DATE: 20170830
